FAERS Safety Report 12454066 (Version 1)
Quarter: 2016Q2

REPORT INFORMATION
  Report Type: Spontaneous
  Country: FR (occurrence: FR)
  Receive Date: 20160610
  Receipt Date: 20160610
  Transmission Date: 20160815
  Serious: Yes (Hospitalization)
  Sender: FDA-Public Use
  Company Number: FR-ROCHE-1772756

PATIENT
  Age: 54 Year
  Sex: Male

DRUGS (6)
  1. METHOTREXATE [Suspect]
     Active Substance: METHOTREXATE
     Indication: B-CELL LYMPHOMA
     Route: 041
     Dates: start: 20160426, end: 20160509
  2. METHYLPREDNISOLONE. [Suspect]
     Active Substance: METHYLPREDNISOLONE
     Indication: B-CELL LYMPHOMA
     Dosage: 120 THEN 80 MG/DAY
     Route: 042
     Dates: start: 20160422
  3. PREDNISOLONE. [Suspect]
     Active Substance: PREDNISOLONE
     Indication: B-CELL LYMPHOMA
     Route: 048
     Dates: start: 20160426, end: 20160513
  4. ETOPOSIDE MYLAN [Suspect]
     Active Substance: ETOPOSIDE
     Indication: B-CELL LYMPHOMA
     Route: 042
     Dates: start: 20160427, end: 20160510
  5. BICNU [Suspect]
     Active Substance: CARMUSTINE
     Indication: B-CELL LYMPHOMA
     Route: 042
     Dates: start: 20160426, end: 20160511
  6. MABTHERA [Suspect]
     Active Substance: RITUXIMAB
     Indication: B-CELL LYMPHOMA
     Route: 041
     Dates: start: 20160509, end: 20160509

REACTIONS (3)
  - Sepsis [Recovered/Resolved]
  - Respiratory distress [Recovered/Resolved]
  - Lung abscess [Recovering/Resolving]

NARRATIVE: CASE EVENT DATE: 20160525
